FAERS Safety Report 17452751 (Version 2)
Quarter: 2020Q1

REPORT INFORMATION
  Report Type: Spontaneous
  Country: FR (occurrence: FR)
  Receive Date: 20200224
  Receipt Date: 20200316
  Transmission Date: 20200409
  Serious: Yes (Hospitalization)
  Sender: FDA-Public Use
  Company Number: NVSC2020FR044347

PATIENT
  Age: 66 Year
  Sex: Male
  Weight: 72.5 kg

DRUGS (4)
  1. LYSODREN [Suspect]
     Active Substance: MITOTANE
     Dosage: 4500 MG, QD
     Route: 065
     Dates: start: 20191113
  2. METOPIRONE [Suspect]
     Active Substance: METYRAPONE
     Indication: ADRENOCORTICAL CARCINOMA
     Dosage: 3 G, QD
     Route: 048
     Dates: start: 20191029, end: 20191110
  3. LYSODREN [Suspect]
     Active Substance: MITOTANE
     Indication: ADRENOCORTICAL CARCINOMA
     Dosage: 4500 MG, QD
     Route: 048
     Dates: start: 20191002, end: 20191110
  4. KETOCONAZOLE. [Suspect]
     Active Substance: KETOCONAZOLE
     Indication: ADRENOCORTICAL CARCINOMA
     Dosage: 1000 MG, QD
     Route: 048
     Dates: start: 20190917, end: 20191110

REACTIONS (1)
  - Adrenocortical insufficiency acute [Recovered/Resolved]

NARRATIVE: CASE EVENT DATE: 20191110
